FAERS Safety Report 11238360 (Version 2)
Quarter: 2015Q3

REPORT INFORMATION
  Report Type: Report from Study
  Country: US (occurrence: US)
  Receive Date: 20150704
  Receipt Date: 20150718
  Transmission Date: 20151125
  Serious: No
  Sender: FDA-Public Use
  Company Number: PHEH2015US005610

PATIENT
  Sex: Female

DRUGS (4)
  1. EXTAVIA [Suspect]
     Active Substance: INTERFERON BETA-1B
     Dosage: 0.125 MG (0.5ML, WEEKS 3 TO 4)
     Route: 058
  2. EXTAVIA [Suspect]
     Active Substance: INTERFERON BETA-1B
     Indication: MULTIPLE SCLEROSIS
     Dosage: 0.062 MG, QOD (0.25 ML, WEEKS 1 TO 2)
     Route: 058
     Dates: start: 20150216
  3. EXTAVIA [Suspect]
     Active Substance: INTERFERON BETA-1B
     Dosage: 0.187 MG, QOD (0.75ML, WEEKS 5 TO 6)
     Route: 058
  4. EXTAVIA [Suspect]
     Active Substance: INTERFERON BETA-1B
     Dosage: 0.25 MG, QOD (1ML) (WEEKS 7+)
     Route: 058

REACTIONS (15)
  - Fatigue [Unknown]
  - Blood cholesterol increased [Unknown]
  - Pain [Unknown]
  - Injection site bruising [Recovering/Resolving]
  - Injection site haematoma [Unknown]
  - Neck pain [Unknown]
  - Head discomfort [Unknown]
  - Pain in extremity [Unknown]
  - Vertigo [Unknown]
  - Injection site rash [Unknown]
  - Asthenia [Unknown]
  - Headache [Unknown]
  - Insomnia [Unknown]
  - Hypertension [Unknown]
  - Depression [Recovering/Resolving]
